FAERS Safety Report 12691546 (Version 1)
Quarter: 2016Q3

REPORT INFORMATION
  Report Type: Report from Study
  Country: US (occurrence: US)
  Receive Date: 20160826
  Receipt Date: 20160826
  Transmission Date: 20161109
  Serious: Yes (Other)
  Sender: FDA-Public Use
  Company Number: US-BAUSCH-BL-2016-020293

PATIENT
  Age: 36 Year
  Sex: Female

DRUGS (4)
  1. FLUOCINOLONE ACETATE [Suspect]
     Active Substance: FLUOCINOLONE ACETONIDE
     Indication: GLAUCOMA
  2. TRIAMCINOLONE ACETATE [Suspect]
     Active Substance: TRIAMCINOLONE ACETONIDE
     Indication: GLAUCOMA
  3. FLUOCINOLONE ACETATE [Suspect]
     Active Substance: FLUOCINOLONE ACETONIDE
     Indication: AUTOIMMUNE RETINOPATHY
     Route: 065
  4. TRIAMCINOLONE ACETATE [Suspect]
     Active Substance: TRIAMCINOLONE ACETONIDE
     Indication: AUTOIMMUNE RETINOPATHY
     Route: 065

REACTIONS (5)
  - Fibrosis [Unknown]
  - Retinal degeneration [Unknown]
  - Visual acuity reduced [Unknown]
  - Intraocular pressure increased [Unknown]
  - Drug effect incomplete [Unknown]
